FAERS Safety Report 19561890 (Version 1)
Quarter: 2021Q3

REPORT INFORMATION
  Report Type: Spontaneous
  Country: US (occurrence: US)
  Receive Date: 20210716
  Receipt Date: 20210716
  Transmission Date: 20211014
  Serious: Yes (Death)
  Sender: FDA-Public Use
  Company Number: None

PATIENT
  Sex: Female

DRUGS (26)
  1. LID/PRILOCN CRE [Concomitant]
  2. METOCLOPRAM [Concomitant]
     Active Substance: METOCLOPRAMIDE
  3. PANTOPRAZOLE [Concomitant]
     Active Substance: PANTOPRAZOLE
  4. SOD CHLORIDE [Concomitant]
     Active Substance: SODIUM CHLORIDE
  5. CALCITRIOL. [Concomitant]
     Active Substance: CALCITRIOL
  6. TEMAZEPAM. [Concomitant]
     Active Substance: TEMAZEPAM
  7. FLUDROCORT [Concomitant]
  8. GLYCOPYRROL [Concomitant]
  9. LEVOTHYROXIN [Concomitant]
     Active Substance: LEVOTHYROXINE
  10. MYCOPHENOLATE 500MG TAB [Suspect]
     Active Substance: MYCOPHENOLIC ACID
     Indication: CHRONIC KIDNEY DISEASE
     Route: 048
     Dates: start: 20190121
  11. MUCUS RELIEF [Concomitant]
     Active Substance: GUAIFENESIN
  12. BENZONATATE. [Concomitant]
     Active Substance: BENZONATATE
  13. DAILYVITE [Concomitant]
  14. GABAPENTIN. [Concomitant]
     Active Substance: GABAPENTIN
  15. TRAMADOL HCL [Concomitant]
     Active Substance: TRAMADOL HYDROCHLORIDE
  16. VANCOMYCIN [Concomitant]
     Active Substance: VANCOMYCIN
  17. CLOTRIMAZOLE TRO [Concomitant]
  18. KLOR?CON [Concomitant]
     Active Substance: POTASSIUM CHLORIDE
  19. SERTRALINE [Concomitant]
     Active Substance: SERTRALINE HYDROCHLORIDE
  20. NYSTATIN. [Concomitant]
     Active Substance: NYSTATIN
  21. FLUTICASONE SPR [Concomitant]
  22. HYDROXYZ HCL [Concomitant]
     Active Substance: HYDROXYZINE HYDROCHLORIDE
  23. MIDODRINE [Concomitant]
     Active Substance: MIDODRINE
  24. OMEPRAZOLE. [Concomitant]
     Active Substance: OMEPRAZOLE
  25. POT CL MICRO ER [Concomitant]
  26. SEVELAMER [Concomitant]
     Active Substance: SEVELAMER

REACTIONS (1)
  - Death [None]
